FAERS Safety Report 25725269 (Version 1)
Quarter: 2025Q3

REPORT INFORMATION
  Report Type: Spontaneous
  Country: US (occurrence: US)
  Receive Date: 20250826
  Receipt Date: 20250826
  Transmission Date: 20251020
  Serious: Yes (Other)
  Sender: STRIDES
  Company Number: US-STRIDES ARCOLAB LIMITED-2025SP010890

PATIENT

DRUGS (1)
  1. VALGANCICLOVIR HYDROCHLORIDE [Suspect]
     Active Substance: VALGANCICLOVIR HYDROCHLORIDE
     Indication: Antiviral prophylaxis
     Route: 065

REACTIONS (4)
  - Cytomegalovirus chorioretinitis [Recovered/Resolved]
  - Cytomegalovirus viraemia [Recovered/Resolved]
  - Drug resistance [Unknown]
  - Treatment noncompliance [Unknown]
